FAERS Safety Report 5385984-X (Version None)
Quarter: 2007Q3

REPORT INFORMATION
  Report Type: 
  Country: None (occurrence: None)
  Receive Date: 20070709
  Receipt Date: 20070625
  Transmission Date: 20080115
  Serious: Yes (Hospitalization)
  Sender: FDA-Public Use
  Company Number: 2007SP012488

PATIENT
  Age: 79 Year
  Sex: Female

DRUGS (4)
  1. BETAMETHASONE SODIUM PHOSPHATE [Suspect]
     Indication: KERATITIS
  2. PREDONINE [Concomitant]
  3. DEXAMETHASONE SODIUM [Concomitant]
  4. PHOSPHATE [Concomitant]

REACTIONS (5)
  - CORNEAL OPACITY [None]
  - CORNEAL PERFORATION [None]
  - DISEASE RECURRENCE [None]
  - HYPHAEMA [None]
  - KERATITIS HERPETIC [None]
